FAERS Safety Report 5840069-0 (Version None)
Quarter: 2008Q3

REPORT INFORMATION
  Report Type: 
  Country: None (occurrence: None)
  Receive Date: 20080811
  Receipt Date: 20080807
  Transmission Date: 20090109
  Serious: Yes (Hospitalization)
  Sender: FDA-Public Use
  Company Number: A0664046B

PATIENT
  Age: 56 Year
  Sex: Female
  Weight: 84 kg

DRUGS (5)
  1. LAPATINIB [Suspect]
     Dosage: 1500MG PER DAY
     Route: 048
     Dates: start: 20070622
  2. CEFUROXIME SODIUM [Suspect]
     Dates: start: 20071001
  3. ASPIRIN [Concomitant]
     Dosage: 100MG PER DAY
     Dates: start: 20070806
  4. HYLAK FORTE [Concomitant]
     Dosage: 4MG THREE TIMES PER DAY
     Dates: start: 20071002, end: 20071004
  5. METAMIZOL [Concomitant]
     Dosage: 1G TWICE PER DAY
     Dates: start: 20071002, end: 20071004

REACTIONS (5)
  - DIARRHOEA [None]
  - GASTROENTERITIS [None]
  - NAUSEA [None]
  - SUBILEUS [None]
  - VOMITING [None]
